FAERS Safety Report 14155825 (Version 2)
Quarter: 2017Q4

REPORT INFORMATION
  Report Type: Spontaneous
  Country: US (occurrence: US)
  Receive Date: 20171103
  Receipt Date: 20171129
  Transmission Date: 20180321
  Serious: Yes (Other)
  Sender: FDA-Public Use
  Company Number: US-JNJFOC-20170827777

PATIENT
  Age: 31 Year
  Sex: Female
  Weight: 65.32 kg

DRUGS (2)
  1. HYDROXYCHLOROQUINE [Concomitant]
     Active Substance: HYDROXYCHLOROQUINE
     Indication: SYSTEMIC LUPUS ERYTHEMATOSUS
     Route: 065
  2. LISTERINE POCKETPAK [Suspect]
     Active Substance: EUCALYPTOL\MENTHOL\METHYL SALICYLATE\THYMOL
     Indication: BREATH ODOUR
     Dosage: USED ONLY ONCE (TWO STRIPS THAT WERE STUCK TOGETHER)
     Route: 048
     Dates: start: 20170715, end: 20170716

REACTIONS (4)
  - Gingivitis [Not Recovered/Not Resolved]
  - Paraesthesia oral [Not Recovered/Not Resolved]
  - Chemical burn of gastrointestinal tract [Not Recovered/Not Resolved]
  - Product physical issue [Unknown]

NARRATIVE: CASE EVENT DATE: 20170715
